FAERS Safety Report 19075855 (Version 3)
Quarter: 2023Q2

REPORT INFORMATION
  Report Type: Spontaneous
  Country: US (occurrence: US)
  Receive Date: 20210331
  Receipt Date: 20230503
  Transmission Date: 20230721
  Serious: No
  Sender: FDA-Public Use
  Company Number: US-SA-SAC20210325001305

PATIENT
  Age: 38 Year
  Sex: Female
  Weight: 50.794 kg

DRUGS (17)
  1. CEREZYME [Suspect]
     Active Substance: IMIGLUCERASE
     Indication: Gaucher^s disease
     Dosage: 3600 U (90 ML), QOW
     Route: 042
     Dates: start: 19940728
  2. CEREZYME [Suspect]
     Active Substance: IMIGLUCERASE
     Dosage: 3600 U  QOW
     Route: 042
     Dates: start: 202104
  3. SODIUM CHLORIDE [Concomitant]
     Active Substance: SODIUM CHLORIDE
  4. SODIUM CHLORIDE [Concomitant]
     Active Substance: SODIUM CHLORIDE
  5. STERILE WATER [Concomitant]
     Active Substance: WATER
  6. EPINEPHRINE [Concomitant]
     Active Substance: EPINEPHRINE
  7. PEPCID [Concomitant]
     Active Substance: FAMOTIDINE
  8. NITROFURANTOIN [Concomitant]
     Active Substance: NITROFURANTOIN
  9. OXYCODONE [Concomitant]
     Active Substance: OXYCODONE
  10. CEPHALEXIN [Concomitant]
     Active Substance: CEPHALEXIN
  11. METHADONE [Concomitant]
     Active Substance: METHADONE HYDROCHLORIDE
  12. OXYBUTYNIN [Concomitant]
     Active Substance: OXYBUTYNIN
  13. GABAPENTIN [Concomitant]
     Active Substance: GABAPENTIN
  14. FAMOTIDINE [Concomitant]
     Active Substance: FAMOTIDINE
  15. TYLENOL [Concomitant]
     Active Substance: ACETAMINOPHEN
  16. VITAMIN C [Concomitant]
     Active Substance: ASCORBIC ACID
  17. VITAMINS NOS [Concomitant]
     Active Substance: VITAMINS

REACTIONS (2)
  - Urinary tract infection [Recovered/Resolved]
  - Urinary tract infection [Unknown]

NARRATIVE: CASE EVENT DATE: 20210301
